FAERS Safety Report 7901651 (Version 3)
Quarter: 2014Q4

REPORT INFORMATION
  Report Type: Spontaneous
  Country: US (occurrence: US)
  Receive Date: 20110415
  Receipt Date: 20141105
  Transmission Date: 20150529
  Serious: Yes (Death, Other)
  Sender: FDA-Public Use
  Company Number: US-AMGEN-USACT2011018622

PATIENT

DRUGS (18)
  1. ARA-C [Suspect]
     Active Substance: CYTARABINE
     Indication: BURKITT^S LYMPHOMA
     Dosage: 1000 MG/M2, OVER 2 H ON DAYS 4-5
     Route: 065
  2. PREDNISONE. [Suspect]
     Active Substance: PREDNISONE
     Indication: BURKITT^S LYMPHOMA
     Dosage: 60 MG/M2, ON DAYS 1-7
     Route: 048
  3. METHOTREXATE [Suspect]
     Active Substance: METHOTREXATE
     Indication: BURKITT^S LYMPHOMA
     Dosage: 150 MG/M2, UNK
     Route: 065
  4. ETOPOSIDE. [Suspect]
     Active Substance: ETOPOSIDE
     Indication: BURKITT^S LYMPHOMA
     Dosage: 80 MG/M2, OVER 1 H ON DAYS 4-5
     Route: 065
  5. CYCLOPHOSPHAMIDE. [Suspect]
     Active Substance: CYCLOPHOSPHAMIDE
     Indication: BURKITT^S LYMPHOMA
     Dosage: 200 MG/M2, UNK
     Route: 042
  6. FOLINIC ACID [Suspect]
     Active Substance: LEUCOVORIN
     Dosage: 50 MG/M2, 36 H AFTER INITIATION OF METHOTREXATE, THEN 10 MG/M2 EVERY 6 H UNTIL LEVEL {0.05 MICROMOL/
     Route: 065
  7. DOXORUBICIN [Suspect]
     Active Substance: DOXORUBICIN
     Indication: BURKITT^S LYMPHOMA
     Dosage: 25 MG/M2, ON DAYS 4-5 (CYCLES 3, 5, 7)
     Route: 065
  8. IFOSFAMIDE. [Suspect]
     Active Substance: IFOSFAMIDE
     Indication: BURKITT^S LYMPHOMA
     Dosage: 800 MG/M2,  ON DAYS 1-5; OVER 1 H WITH MESNA
     Route: 065
  9. FOLINIC ACID [Suspect]
     Active Substance: LEUCOVORIN
     Indication: BURKITT^S LYMPHOMA
     Dosage: 25 MG/M2, 36 H AFTER INITIATION OF METHOTREXATE, THEN 10 MG/M2 EVERY 6 H UNTIL LEVEL {0.05 MICROMOL/
     Route: 065
  10. METHOTREXATE [Suspect]
     Active Substance: METHOTREXATE
     Dosage: 1.35 G/M2, OVER 23.5 H; DOSE HELD FOR CREATININE CLEARANCE {50 ML/MIN
     Route: 065
  11. ALLOPURINOL. [Suspect]
     Active Substance: ALLOPURINOL
     Indication: BURKITT^S LYMPHOMA
     Dosage: 300 MG, CYCLEL, ON DAYS 1-14
     Route: 048
  12. RITUXIMAB [Suspect]
     Active Substance: RITUXIMAB
     Dosage: 375 MG/M2, IN CYCLE 2 ON DAYS 10 AND 12; FOR CYCLES 3-7, ONLY ON DAY 8 OF EACH CYCLE
     Route: 065
  13. VINCRISTINE [Suspect]
     Active Substance: VINCRISTINE
     Indication: BURKITT^S LYMPHOMA
     Dosage: 2 MG LOADING , UNK
     Route: 065
  14. RITUXIMAB [Suspect]
     Active Substance: RITUXIMAB
     Indication: BURKITT^S LYMPHOMA
     Dosage: 50 MG/M2, IN CYCLE 2 AT A DOSE OF 50 MG/M2 ON DAY 8 AND 375 MG/M2/D ON DAYS 10 AND 12
     Route: 065
  15. FILGRASTIM [Suspect]
     Active Substance: FILGRASTIM
     Indication: BURKITT^S LYMPHOMA
     Dosage: BEGINNING DAY 7 OF EACH CYCLE UNTIL ANC}0.5 X10^9/L
     Route: 058
  16. CYCLOPHOSPHAMIDE. [Suspect]
     Active Substance: CYCLOPHOSPHAMIDE
     Dosage: 200 MG/M2, ON DAYS 1-5 (CYCLE 1 AND CYCLES 3,5,7)
     Route: 065
  17. VP-16 [Suspect]
     Active Substance: ETOPOSIDE
     Indication: BURKITT^S LYMPHOMA
     Dosage: 80 MG/M2, UNK
     Route: 065
  18. DEXAMETHASONE. [Suspect]
     Active Substance: DEXAMETHASONE
     Indication: BURKITT^S LYMPHOMA
     Dosage: 10 MG/M2, ON DAYS 1-5
     Route: 065

REACTIONS (22)
  - Diarrhoea [Unknown]
  - Dyspnoea [Unknown]
  - Tumour lysis syndrome [Unknown]
  - Febrile neutropenia [Unknown]
  - Infection [Fatal]
  - Neuropathy peripheral [Unknown]
  - Nausea [Unknown]
  - Peripheral sensory neuropathy [Unknown]
  - Toxicity to various agents [Unknown]
  - Stomatitis [Unknown]
  - Vomiting [Unknown]
  - Neutropenia [Unknown]
  - Renal failure [Unknown]
  - Haemorrhagic stroke [Fatal]
  - Fatigue [Unknown]
  - Rash [Unknown]
  - Respiratory failure [Fatal]
  - Confusional state [Unknown]
  - Cardiotoxicity [Unknown]
  - Erythema multiforme [Unknown]
  - Pulmonary haemorrhage [Unknown]
  - Pneumonitis [Unknown]
